FAERS Safety Report 12987338 (Version 3)
Quarter: 2016Q4

REPORT INFORMATION
  Report Type: Report from Study
  Country: US (occurrence: US)
  Receive Date: 20161130
  Receipt Date: 20161222
  Transmission Date: 20170207
  Serious: Yes (Hospitalization)
  Sender: FDA-Public Use
  Company Number: US-BAYER-2016-222774

PATIENT
  Age: 87 Year
  Sex: Male

DRUGS (2)
  1. XOFIGO [Suspect]
     Active Substance: RADIUM RA-223 DICHLORIDE
     Indication: METASTASES TO BONE
     Dosage: 140.20 UCI, ONCE EVERY 28 DAYS
     Route: 042
     Dates: start: 20161130, end: 20161130
  2. XOFIGO [Suspect]
     Active Substance: RADIUM RA-223 DICHLORIDE
     Indication: PROSTATE CANCER STAGE IV
     Dosage: 136.30 UCI, ONCE EVERY 28 DAYS
     Route: 042
     Dates: start: 20161102

REACTIONS (5)
  - Syncope [None]
  - Fall [None]
  - Malaise [None]
  - Diarrhoea [None]
  - Dehydration [None]
